FAERS Safety Report 6401500-5 (Version None)
Quarter: 2009Q4

REPORT INFORMATION
  Report Type: 
  Country: None (occurrence: None)
  Receive Date: 20091015
  Receipt Date: 20091009
  Transmission Date: 20100525
  Serious: Yes (Hospitalization)
  Sender: FDA-Public Use
  Company Number: JP-GENENTECH-290004

PATIENT
  Sex: Male

DRUGS (6)
  1. MABTHERA [Suspect]
     Indication: B-CELL LYMPHOMA
     Dosage: 600 MG, UNK
     Route: 042
     Dates: start: 20090116
  2. DOXORUBICIN HCL [Concomitant]
     Indication: B-CELL LYMPHOMA
     Dosage: 80 MG, UNK
     Dates: start: 20090116
  3. CYCLOPHOSPHAMIDE [Concomitant]
     Indication: B-CELL LYMPHOMA
     Dosage: 1250 MG, UNK
     Route: 042
     Dates: start: 20090116
  4. VINCRISTINE SULFATE [Concomitant]
     Indication: B-CELL LYMPHOMA
     Dosage: 2 MG, UNK
     Route: 042
     Dates: start: 20090116
  5. PREDNISOLONE [Concomitant]
     Indication: B-CELL LYMPHOMA
     Dosage: 100 MG, UNK
     Dates: start: 20090116
  6. METHYLPREDNISOLONE [Concomitant]
     Indication: PYREXIA
     Dosage: 1 G, QD
     Dates: start: 20090108, end: 20090110

REACTIONS (2)
  - SICK SINUS SYNDROME [None]
  - WHITE BLOOD CELL COUNT DECREASED [None]
